FAERS Safety Report 6271834-6 (Version None)
Quarter: 2009Q3

REPORT INFORMATION
  Report Type: 
  Country: None (occurrence: None)
  Receive Date: 20090717
  Receipt Date: 20090710
  Transmission Date: 20100115
  Serious: Yes (Other)
  Sender: FDA-Public Use
  Company Number: US-B.I. PHARMACEUTICALS,INC./RIDGEFIELD-2009-BP-07400BP

PATIENT
  Sex: Male

DRUGS (2)
  1. SPIRIVA [Suspect]
     Dates: end: 20090615
  2. ATROVENT HFA [Suspect]
     Dates: end: 20090615

REACTIONS (2)
  - ANGIOEDEMA [None]
  - SWOLLEN TONGUE [None]
